FAERS Safety Report 7023456-7 (Version None)
Quarter: 2010Q3

REPORT INFORMATION
  Report Type: 
  Country: None (occurrence: None)
  Receive Date: 20100929
  Receipt Date: 20100624
  Transmission Date: 20110219
  Serious: Yes (Disabling)
  Sender: FDA-Public Use
  Company Number: APP201000581

PATIENT
  Age: 48 Year
  Sex: Female

DRUGS (9)
  1. SENSORCAINE (BUPIVACINE HYDROCHLORIDE) [Suspect]
     Indication: MUSCULOSKELETAL PAIN
     Dosage: 120 ML, CONTINOUS VIA PUMP AT 2.08 ML/HR, INTRA-ARTICULAR, 30 ML, LOCAL INFILTRATION
     Route: 014
     Dates: start: 20070824
  2. SENSORCAINE (BUPIVACINE HYDROCHLORIDE) [Suspect]
     Indication: PROCEDURAL PAIN
     Dosage: 120 ML, CONTINOUS VIA PUMP AT 2.08 ML/HR, INTRA-ARTICULAR, 30 ML, LOCAL INFILTRATION
     Route: 014
     Dates: start: 20070824
  3. SENSORCAINE (BUPIVACINE HYDROCHLORIDE) [Suspect]
     Indication: MUSCULOSKELETAL PAIN
     Dosage: 120 ML, CONTINOUS VIA PUMP AT 2.08 ML/HR, INTRA-ARTICULAR, 30 ML, LOCAL INFILTRATION
     Route: 014
     Dates: start: 20070824
  4. SENSORCAINE (BUPIVACINE HYDROCHLORIDE) [Suspect]
     Indication: PROCEDURAL PAIN
     Dosage: 120 ML, CONTINOUS VIA PUMP AT 2.08 ML/HR, INTRA-ARTICULAR, 30 ML, LOCAL INFILTRATION
     Route: 014
     Dates: start: 20070824
  5. STRYKER PAIN PUMP [Suspect]
     Indication: MUSCULOSKELETAL PAIN
     Dates: start: 20070824
  6. STRYKER PAIN PUMP [Suspect]
     Indication: PROCEDURAL PAIN
     Dates: start: 20070824
  7. CELESTONE [Suspect]
     Indication: MUSCULOSKELETAL PAIN
     Dosage: 30 MG, MIXED WITH MARCAIN VIA PAIN PUMP, INTRA-ARTICULAR
     Route: 014
     Dates: start: 20070824
  8. CELESTONE [Suspect]
     Indication: PROCEDURAL PAIN
     Dosage: 30 MG, MIXED WITH MARCAIN VIA PAIN PUMP, INTRA-ARTICULAR
     Route: 014
     Dates: start: 20070824
  9. ANCEF [Concomitant]

REACTIONS (2)
  - JOINT INJURY [None]
  - MUSCULOSKELETAL PAIN [None]
